FAERS Safety Report 4518994-2 (Version None)
Quarter: 2004Q4

REPORT INFORMATION
  Report Type: 
  Country: None (occurrence: None)
  Receive Date: 20041201
  Receipt Date: 20041117
  Transmission Date: 20050328
  Serious: Yes (Disabling)
  Sender: FDA-Public Use
  Company Number: 200300434

PATIENT
  Age: 32 Year
  Sex: Female
  Weight: 65 kg

DRUGS (4)
  1. BOTOX PURIFIED NEUROTOXIN COMPLEX [Suspect]
     Indication: SKIN WRINKLING
     Dosage: 33 UNITS PRN IM
     Route: 030
  2. MAGNESIUM [Concomitant]
  3. CALCIUM [Concomitant]
  4. COLLAGEN [Concomitant]

REACTIONS (20)
  - ARTHROPATHY [None]
  - ASTHENIA [None]
  - BACK PAIN [None]
  - DIZZINESS [None]
  - EPISTAXIS [None]
  - HAEMORRHOIDS [None]
  - INJECTION SITE HAEMORRHAGE [None]
  - INJECTION SITE PAIN [None]
  - MUSCLE DISORDER [None]
  - MUSCLE SPASMS [None]
  - MUSCLE TWITCHING [None]
  - NECK INJURY [None]
  - NECK PAIN [None]
  - PAIN IN EXTREMITY [None]
  - PARAESTHESIA [None]
  - RECTAL HAEMORRHAGE [None]
  - ROAD TRAFFIC ACCIDENT [None]
  - SENSORY DISTURBANCE [None]
  - SPINAL DISORDER [None]
  - TREMOR [None]
